FAERS Safety Report 7816074-1 (Version None)
Quarter: 2011Q4

REPORT INFORMATION
  Report Type: 
  Country: None (occurrence: None)
  Receive Date: 20111015
  Receipt Date: 20111005
  Transmission Date: 20120403
  Serious: Yes (Hospitalization, Other)
  Sender: FDA-Public Use
  Company Number: US-ASTRAZENECA-2011SE44108

PATIENT
  Age: 70 Year
  Sex: Male

DRUGS (7)
  1. SEROQUEL XR [Suspect]
     Indication: DEMENTIA ALZHEIMER'S TYPE
     Route: 048
     Dates: start: 20080101
  2. LISINOPRIL [Concomitant]
     Indication: HYPERTENSION
     Route: 048
  3. LORAZEPAM [Concomitant]
  4. EXELON [Concomitant]
  5. ZEGERID OTC [Concomitant]
     Indication: GASTROOESOPHAGEAL REFLUX DISEASE
  6. ASPIRIN [Concomitant]
  7. NAMENDA [Concomitant]

REACTIONS (5)
  - DRUG DOSE OMISSION [None]
  - AORTIC ANEURYSM [None]
  - PROSTATE CANCER [None]
  - DEMENTIA [None]
  - ABNORMAL BEHAVIOUR [None]
